FAERS Safety Report 6219589-5 (Version None)
Quarter: 2009Q2

REPORT INFORMATION
  Report Type: 
  Country: None (occurrence: None)
  Receive Date: 20090609
  Receipt Date: 20090529
  Transmission Date: 20091009
  Serious: Yes (Other)
  Sender: FDA-Public Use
  Company Number: US-PFIZER INC-2009207263

PATIENT
  Sex: Female
  Weight: 63.492 kg

DRUGS (7)
  1. LIPITOR [Suspect]
     Indication: BLOOD CHOLESTEROL INCREASED
     Dosage: 20 MG, 1X/DAY
     Dates: end: 20090426
  2. PREDNISONE [Suspect]
     Indication: RHEUMATOID ARTHRITIS
     Dosage: UNK
  3. FOSAMAX [Concomitant]
     Dosage: UNK
  4. DILTIAZEM [Concomitant]
     Indication: CARDIAC DISORDER
     Dosage: UNK
  5. MONTELUKAST [Concomitant]
     Indication: HYPERSENSITIVITY
     Dosage: UNK
  6. CLARITIN [Concomitant]
     Indication: HYPERSENSITIVITY
     Dosage: UNK
  7. GLUCOTROL [Concomitant]
     Indication: DIABETES MELLITUS
     Dosage: UNK

REACTIONS (8)
  - ALOPECIA [None]
  - ARTHRALGIA [None]
  - ARTHRITIS [None]
  - CORONARY ARTERY BYPASS [None]
  - GAIT DISTURBANCE [None]
  - MALAISE [None]
  - MYALGIA [None]
  - NECK PAIN [None]
